FAERS Safety Report 24338872 (Version 1)
Quarter: 2024Q3

REPORT INFORMATION
  Report Type: Spontaneous
  Country: US (occurrence: US)
  Receive Date: 20240919
  Receipt Date: 20240919
  Transmission Date: 20241016
  Serious: No
  Sender: BAUSCH AND LOMB
  Company Number: US-BAUSCHBL-2024BNL033190

PATIENT
  Sex: Female

DRUGS (2)
  1. XIIDRA [Suspect]
     Active Substance: LIFITEGRAST
     Indication: Dry eye
     Route: 065
  2. RESTASIS [Concomitant]
     Active Substance: CYCLOSPORINE
     Indication: Dry eye
     Route: 065

REACTIONS (2)
  - Foreign body sensation in eyes [Unknown]
  - Eye irritation [Unknown]
